FAERS Safety Report 7434455-5 (Version None)
Quarter: 2011Q2

REPORT INFORMATION
  Report Type: 
  Country: None (occurrence: None)
  Receive Date: 20110425
  Receipt Date: 20110414
  Transmission Date: 20111010
  Serious: Yes (Hospitalization)
  Sender: FDA-Public Use
  Company Number: JP-AMGEN-JPNCT2010011969

PATIENT
  Age: 61 Year
  Sex: Male
  Weight: 49 kg

DRUGS (9)
  1. MINOMYCIN [Suspect]
     Route: 048
  2. FLUOROURACIL [Suspect]
     Route: 041
     Dates: start: 20101110, end: 20101208
  3. CALCIUM LEVOFOLINATE [Concomitant]
     Indication: COLORECTAL CANCER
     Route: 041
     Dates: start: 20101110
  4. CALCIUM LEVOFOLINATE [Concomitant]
     Route: 041
     Dates: start: 20101110, end: 20101208
  5. FLUOROURACIL [Suspect]
     Indication: COLORECTAL CANCER
     Route: 040
     Dates: start: 20101110, end: 20101208
  6. PANITUMUMAB [Suspect]
     Indication: COLORECTAL CANCER
     Dosage: 6 MG/KG, UNK
     Route: 041
     Dates: start: 20101110, end: 20101208
  7. PANITUMUMAB [Suspect]
     Dosage: UNK
     Dates: start: 20110316
  8. ELPLAT [Suspect]
     Indication: COLORECTAL CANCER
     Route: 041
     Dates: start: 20101110, end: 20101208
  9. CORTICOSTEROIDS [Concomitant]
     Indication: PROPHYLAXIS
     Route: 065

REACTIONS (4)
  - DIARRHOEA [None]
  - DECREASED APPETITE [None]
  - DERMATITIS ACNEIFORM [None]
  - FATIGUE [None]
